FAERS Safety Report 5299512-0 (Version None)
Quarter: 2007Q1

REPORT INFORMATION
  Report Type: 
  Country: None (occurrence: None)
  Receive Date: 20070201
  Receipt Date: 20061030
  Transmission Date: 20070707
  Serious: No
  Sender: FDA-Public Use
  Company Number: 2006PV024189

PATIENT
  Age: 57 Year
  Sex: Male

DRUGS (7)
  1. BYETTA [Suspect]
     Indication: DIABETES MELLITUS NON-INSULIN-DEPENDENT
     Dosage: SEE IMAGE
     Route: 058
     Dates: start: 20060701, end: 20060801
  2. BYETTA [Suspect]
     Indication: DIABETES MELLITUS NON-INSULIN-DEPENDENT
     Dosage: SEE IMAGE
     Route: 058
     Dates: start: 20060801
  3. AMARYL [Concomitant]
  4. METFORMIN HCL [Concomitant]
  5. LANTUS [Concomitant]
  6. DEPRESSION MEDICINE [Concomitant]
  7. BLOOD PRESSURE MEDICINE [Concomitant]

REACTIONS (2)
  - INCREASED APPETITE [None]
  - WEIGHT INCREASED [None]
